FAERS Safety Report 18545281 (Version 2)
Quarter: 2021Q1

REPORT INFORMATION
  Report Type: Spontaneous
  Country: JP (occurrence: JP)
  Receive Date: 20201125
  Receipt Date: 20210105
  Transmission Date: 20210419
  Serious: Yes (Other)
  Sender: FDA-Public Use
  Company Number: JP-ORION CORPORATION ORION PHARMA-ENTC2020-0334

PATIENT
  Age: 81 Year
  Sex: Female

DRUGS (1)
  1. STALEVO [Suspect]
     Active Substance: CARBIDOPA\ENTACAPONE\LEVODOPA
     Indication: PARKINSON^S DISEASE
     Dosage: LCE: UNKNOWN MG UNKNOWN MG 100 MG
     Route: 050

REACTIONS (3)
  - Wrong technique in product usage process [Unknown]
  - Parkinson^s disease [Unknown]
  - Incorrect route of product administration [Unknown]
